FAERS Safety Report 6761952-8 (Version None)
Quarter: 2010Q2

REPORT INFORMATION
  Report Type: 
  Country: None (occurrence: None)
  Receive Date: 20100609
  Receipt Date: 20100603
  Transmission Date: 20101027
  Serious: Yes (Hospitalization)
  Sender: FDA-Public Use
  Company Number: US-JNJFOC-20100602254

PATIENT
  Sex: Male
  Weight: 95.26 kg

DRUGS (7)
  1. DURAGESIC-100 [Suspect]
     Indication: PAIN
     Dosage: 100 PLUS 75 UG/HR, NDC# 50458-093 AND 50458-094
     Route: 062
  2. DURAGESIC-100 [Suspect]
     Dosage: 100 PLUS 75 UG/HR, NDC# 50458-093 AND 50458-094
     Route: 062
  3. GABAPENTIN [Concomitant]
     Indication: PAIN
     Route: 048
  4. VICODIN [Concomitant]
     Indication: PAIN
     Dosage: 7.5/500 MG
     Route: 048
  5. METFORMIN HCL [Concomitant]
     Indication: DIABETES MELLITUS
     Route: 048
  6. LANTUS [Concomitant]
     Indication: DIABETES MELLITUS
     Route: 058
  7. NOVOLOG [Concomitant]
     Indication: DIABETES MELLITUS
     Route: 058

REACTIONS (2)
  - CORONARY ARTERIAL STENT INSERTION [None]
  - DRUG ADMINISTERED AT INAPPROPRIATE SITE [None]
